FAERS Safety Report 16948179 (Version 1)
Quarter: 2019Q4

REPORT INFORMATION
  Report Type: Spontaneous
  Country: US (occurrence: US)
  Receive Date: 20191022
  Receipt Date: 20191022
  Transmission Date: 20200122
  Serious: No
  Sender: FDA-Public Use
  Company Number: US-ROCHE-2340036

PATIENT
  Sex: Male

DRUGS (13)
  1. FUROSEMIDE. [Concomitant]
     Active Substance: FUROSEMIDE
     Route: 065
  2. LISINOPRIL. [Concomitant]
     Active Substance: LISINOPRIL
     Route: 065
  3. ESBRIET [Suspect]
     Active Substance: PIRFENIDONE
     Indication: IDIOPATHIC PULMONARY FIBROSIS
     Route: 048
  4. ALENDRONATE [Concomitant]
     Active Substance: ALENDRONATE SODIUM
     Route: 065
  5. PREDNISONE. [Concomitant]
     Active Substance: PREDNISONE
     Route: 065
  6. TRAMADOL. [Concomitant]
     Active Substance: TRAMADOL
     Route: 065
  7. GABAPENTIN. [Concomitant]
     Active Substance: GABAPENTIN
     Route: 065
  8. SYMBICORT [Concomitant]
     Active Substance: BUDESONIDE\FORMOTEROL FUMARATE DIHYDRATE
     Dosage: 160 TO 4.5 MCG
     Route: 065
  9. ESBRIET [Suspect]
     Active Substance: PIRFENIDONE
     Route: 048
  10. AMBIEN [Concomitant]
     Active Substance: ZOLPIDEM TARTRATE
     Route: 065
  11. ASPIRIN [ACETYLSALICYLIC ACID] [Concomitant]
     Active Substance: ASPIRIN
     Route: 065
  12. NAPROXEN. [Concomitant]
     Active Substance: NAPROXEN
     Route: 065
  13. ESBRIET [Suspect]
     Active Substance: PIRFENIDONE
     Route: 048

REACTIONS (2)
  - Bone pain [Not Recovered/Not Resolved]
  - Fatigue [Not Recovered/Not Resolved]
